FAERS Safety Report 8896353 (Version 3)
Quarter: 2013Q1

REPORT INFORMATION
  Report Type: Spontaneous
  Country: US (occurrence: None)
  Receive Date: 20121102
  Receipt Date: 20130219
  Transmission Date: 20140127
  Serious: Yes (Hospitalization)
  Sender: FDA-Public Use
  Company Number: 2012SGN00480

PATIENT
  Age: 66 Year
  Sex: Male
  Weight: 131.5 kg

DRUGS (17)
  1. BRENTUXIMAB VEDOTIN (BRENTUXIMAB VEDOTIN) INJECTION [Suspect]
     Indication: LYMPHOMA
     Dosage: 1.8 MG/KG, Q21D, INTRAVENOUS
     Route: 042
     Dates: start: 20111215, end: 20120808
  2. DOXORUBICIN (DOXORUBICIN) (DOXORUBICIN) [Suspect]
     Indication: LYMPHOMA
     Dosage: Q21D
     Route: 042
     Dates: start: 20111215, end: 20120411
  3. CYCLOPHOSPHAMIDE (CYCLOPHOSPHAMIDE) [Suspect]
     Indication: LYMPHOMA
     Dosage: Q21D
     Route: 042
     Dates: start: 20111215, end: 20121104
  4. PREDNISONE (PREDNISONE) [Suspect]
     Indication: LYMPHOMA
     Route: 042
     Dates: start: 20111216, end: 20120415
  5. ALLOPURINOL [Concomitant]
  6. ASPIRIN (ACETYLSALICYLIC ACID) [Concomitant]
  7. NOVOLIN (INSULIN HUMAN, INSULIN HUMAN INJECTION, ISOPHANE) [Concomitant]
  8. SIMVASTATIN (SIMVASTATIN) [Concomitant]
  9. PROZAC (FLUOXETINE HYDROCHLORIDE) [Concomitant]
  10. GLUCOPHAGE (METFORMIN) [Concomitant]
  11. GLUCOPHAGE (METFORMIN) [Concomitant]
  12. MS CONTIN [Concomitant]
  13. DILAUDID [Concomitant]
  14. RANITIDINE (RANITIDINE HYDROCHLORIDE) [Concomitant]
  15. ELAVIL (AMITRIPTYLINE HYDROCHLORIDE) [Concomitant]
  16. COLACE (DOCUSATE SODIUM) [Concomitant]
  17. EMLA (LIDOCAINE, PRILOCAINE HYDROCHLORIDE) [Concomitant]

REACTIONS (9)
  - Cardiac failure [None]
  - Sinus tachycardia [None]
  - Dyspnoea exertional [None]
  - Arthralgia [None]
  - Cough [None]
  - Supraventricular extrasystoles [None]
  - Coronary artery disease [None]
  - Myocardial infarction [None]
  - Cardiac failure congestive [None]
